FAERS Safety Report 6400279-0 (Version None)
Quarter: 2009Q4

REPORT INFORMATION
  Report Type: 
  Country: None (occurrence: None)
  Receive Date: 20091014
  Receipt Date: 20090415
  Transmission Date: 20100525
  Serious: Yes (Other)
  Sender: FDA-Public Use
  Company Number: GB-MERCK-0903GBR00070

PATIENT
  Age: 66 Year
  Sex: Male
  Weight: 97 kg

DRUGS (4)
  1. JANUVIA [Suspect]
     Indication: TYPE 2 DIABETES MELLITUS
     Route: 048
     Dates: start: 20081217, end: 20090115
  2. METFORMIN [Concomitant]
     Route: 065
  3. PIOGLITAZONE HYDROCHLORIDE [Concomitant]
     Indication: BLOOD GLUCOSE
     Route: 065
     Dates: end: 20090210
  4. EXENATIDE [Concomitant]
     Route: 065

REACTIONS (5)
  - ABDOMINAL DISTENSION [None]
  - CARDIAC FAILURE [None]
  - DIARRHOEA [None]
  - DRUG INTOLERANCE [None]
  - OFF LABEL USE [None]
